FAERS Safety Report 4700780-1 (Version None)
Quarter: 2005Q2

REPORT INFORMATION
  Report Type: 
  Country: None (occurrence: None)
  Receive Date: 20050624
  Receipt Date: 20040908
  Transmission Date: 20051028
  Serious: Yes (Death, Hospitalization)
  Sender: FDA-Public Use
  Company Number: 380054

PATIENT
  Age: 73 Year
  Sex: Male
  Weight: 68 kg

DRUGS (5)
  1. XELODA [Suspect]
     Dosage: 1500 MG 2 PER DAY ORAL
     Route: 048
  2. OXYCONTIN [Concomitant]
  3. ULTRAM [Concomitant]
  4. OXYCODONE (OXYCODONE) [Concomitant]
  5. ALDACTONE [Concomitant]

REACTIONS (2)
  - DEATH [None]
  - PANCREATIC CARCINOMA [None]
